FAERS Safety Report 6710333-1 (Version None)
Quarter: 2010Q2

REPORT INFORMATION
  Report Type: 
  Country: None (occurrence: None)
  Receive Date: 20100504
  Receipt Date: 20100422
  Transmission Date: 20101027
  Serious: Yes (Hospitalization)
  Sender: FDA-Public Use
  Company Number: PHHY2010US08143

PATIENT
  Sex: Male
  Weight: 72.2 kg

DRUGS (1)
  1. GLEEVEC [Suspect]
     Indication: GASTROINTESTINAL STROMAL TUMOUR
     Dosage: UNK

REACTIONS (4)
  - BLADDER NEOPLASM SURGERY [None]
  - BLADDER TRANSITIONAL CELL CARCINOMA [None]
  - NEOPLASM MALIGNANT [None]
  - THROMBOSIS [None]
